FAERS Safety Report 6310659-X (Version None)
Quarter: 2009Q3

REPORT INFORMATION
  Report Type: 
  Country: None (occurrence: None)
  Receive Date: 20090811
  Receipt Date: 20090805
  Transmission Date: 20100115
  Serious: Yes (Hospitalization, Other)
  Sender: FDA-Public Use
  Company Number: 2009SP018009

PATIENT
  Age: 51 Year
  Sex: Male

DRUGS (2)
  1. REBETOL [Suspect]
     Indication: HEPATITIS C
     Dosage: 1.2 GM;QD
     Dates: start: 20081217, end: 20090311
  2. PEGASYS [Suspect]
     Indication: HEPATITIS C
     Dosage: 180 MCG; QW; SC
     Route: 058
     Dates: start: 20081217, end: 20090311

REACTIONS (3)
  - DEPRESSION [None]
  - DIABETES MELLITUS [None]
  - POLLAKIURIA [None]
